FAERS Safety Report 13934135 (Version 1)
Quarter: 2017Q3

REPORT INFORMATION
  Report Type: Report from Study
  Country: None (occurrence: FR)
  Receive Date: 20170904
  Receipt Date: 20170904
  Transmission Date: 20171127
  Serious: Yes (Hospitalization)
  Sender: FDA-Public Use
  Company Number: FR-ABBVIE-17K-056-2091738-00

PATIENT
  Age: 76 Year
  Sex: Female

DRUGS (3)
  1. DUODOPA [Suspect]
     Active Substance: CARBIDOPA\LEVODOPA
     Indication: PARKINSON^S DISEASE
     Route: 050
     Dates: start: 201603
  2. MORPHINE [Concomitant]
     Active Substance: MORPHINE
     Indication: PRODUCT USED FOR UNKNOWN INDICATION
  3. DUODOPA [Suspect]
     Active Substance: CARBIDOPA\LEVODOPA
     Dosage: CONT. FLOW RATE:3.4ML/H(7:00AM-12:00AM), 3.8ML/H(12:00AM-9:00PM), 2.9ML/H(9:00 PM-07:00AM)
     Route: 050

REACTIONS (3)
  - Muscle spasms [Unknown]
  - Herpes zoster [Unknown]
  - Obstruction gastric [Unknown]

NARRATIVE: CASE EVENT DATE: 201704
